FAERS Safety Report 5825094-8 (Version None)
Quarter: 2008Q3

REPORT INFORMATION
  Report Type: 
  Country: None (occurrence: None)
  Receive Date: 20080724
  Receipt Date: 20080724
  Transmission Date: 20090109
  Serious: Yes (Hospitalization)
  Sender: FDA-Public Use
  Company Number: None

PATIENT
  Age: 42 Year
  Sex: Male
  Weight: 106.5 kg

DRUGS (9)
  1. VANCOMYCIN [Suspect]
     Indication: PNEUMONIA
     Dosage: 2 GM Q12X3D IV  2GM Q8H X1D IV
     Route: 042
     Dates: start: 20080713, end: 20080717
  2. ZOSYN [Concomitant]
  3. HEPARIN [Concomitant]
  4. ALBUTEROL [Concomitant]
  5. COREG [Concomitant]
  6. SYNTHROID [Concomitant]
  7. LASIX [Concomitant]
  8. ZOFRAN [Concomitant]
  9. ASPIRIN [Concomitant]

REACTIONS (3)
  - BLOOD CREATININE INCREASED [None]
  - PNEUMONIA LEGIONELLA [None]
  - RENAL FAILURE ACUTE [None]
